FAERS Safety Report 11663988 (Version 3)
Quarter: 2015Q4

REPORT INFORMATION
  Report Type: Report from Study
  Country: US (occurrence: US)
  Receive Date: 20151027
  Receipt Date: 20151029
  Transmission Date: 20160304
  Serious: Yes (Hospitalization, Other)
  Sender: FDA-Public Use
  Company Number: PHEH2014US023032

PATIENT
  Sex: Male

DRUGS (8)
  1. CLOZAPINE. [Concomitant]
     Active Substance: CLOZAPINE
     Indication: PRODUCT USED FOR UNKNOWN INDICATION
     Route: 065
  2. MAGNESIA LIQUIDA [Concomitant]
     Indication: PRODUCT USED FOR UNKNOWN INDICATION
     Route: 065
  3. MAGAL [Concomitant]
     Indication: PRODUCT USED FOR UNKNOWN INDICATION
     Route: 065
  4. CLOZARIL [Suspect]
     Active Substance: CLOZAPINE
     Indication: SCHIZOAFFECTIVE DISORDER
     Dosage: 350 MG, EVERY EVENING
     Route: 048
  5. HALOPERIDOL. [Concomitant]
     Active Substance: HALOPERIDOL
     Indication: PRODUCT USED FOR UNKNOWN INDICATION
     Route: 065
  6. IPRATROPIUM BROMIDE. [Concomitant]
     Active Substance: IPRATROPIUM BROMIDE
     Indication: PRODUCT USED FOR UNKNOWN INDICATION
     Route: 065
  7. LITHIUM CARBONATE. [Concomitant]
     Active Substance: LITHIUM CARBONATE
     Indication: PRODUCT USED FOR UNKNOWN INDICATION
     Route: 065
  8. ACETAMINOPHEN. [Concomitant]
     Active Substance: ACETAMINOPHEN
     Indication: PRODUCT USED FOR UNKNOWN INDICATION
     Route: 065

REACTIONS (14)
  - Disturbance in attention [Unknown]
  - Social avoidant behaviour [Unknown]
  - Persecutory delusion [Unknown]
  - Mental impairment [Unknown]
  - Homicidal ideation [Unknown]
  - Schizoaffective disorder [Unknown]
  - Feeling abnormal [Unknown]
  - Insomnia [Unknown]
  - Hallucination, auditory [Not Recovered/Not Resolved]
  - Decreased appetite [Unknown]
  - Drooling [Unknown]
  - Drug intolerance [Unknown]
  - Depressed mood [Unknown]
  - Hallucination [Unknown]
